FAERS Safety Report 9925569 (Version 1)
Quarter: 2014Q1

REPORT INFORMATION
  Report Type: Spontaneous
  Country: US (occurrence: None)
  Receive Date: 20140225
  Receipt Date: 20140225
  Transmission Date: 20141002
  Serious: Yes (Other)
  Sender: FDA-Public Use
  Company Number: None

PATIENT
  Age: 48 Year
  Sex: Female
  Weight: 93.4 kg

DRUGS (1)
  1. INTRON-A (INTERFERON ALFA-2B) [Suspect]
     Dosage: 20 MU
     Dates: start: 20130114

REACTIONS (1)
  - Dehydration [None]
